FAERS Safety Report 12556324 (Version 4)
Quarter: 2021Q2

REPORT INFORMATION
  Report Type: Report from Study
  Country: PA (occurrence: PA)
  Receive Date: 20160714
  Receipt Date: 20210527
  Transmission Date: 20210716
  Serious: Yes (Other)
  Sender: FDA-Public Use
  Company Number: PHHY2016PA095404

PATIENT
  Sex: Female
  Weight: 56.68 kg

DRUGS (4)
  1. ZOLPIDEM [Concomitant]
     Active Substance: ZOLPIDEM TARTRATE
     Indication: PRODUCT USED FOR UNKNOWN INDICATION
     Route: 065
  2. GILENYA [Suspect]
     Active Substance: FINGOLIMOD HYDROCHLORIDE
     Indication: MULTIPLE SCLEROSIS
     Dosage: 0.5 MG, QD
     Route: 048
     Dates: start: 20141124
  3. DICLOFENAC [Concomitant]
     Active Substance: DICLOFENAC
     Indication: PRODUCT USED FOR UNKNOWN INDICATION
     Dosage: PRN
     Route: 048
  4. GILENYA [Suspect]
     Active Substance: FINGOLIMOD HYDROCHLORIDE
     Dosage: 0.5 MG, QD
     Route: 048
     Dates: start: 20160524

REACTIONS (24)
  - Diplopia [Unknown]
  - Gait disturbance [Unknown]
  - Pollakiuria [Recovering/Resolving]
  - Parasitic gastroenteritis [Unknown]
  - Mobility decreased [Unknown]
  - Localised infection [Unknown]
  - Anaemia [Not Recovered/Not Resolved]
  - Movement disorder [Unknown]
  - Multiple sclerosis relapse [Recovering/Resolving]
  - Visual impairment [Not Recovered/Not Resolved]
  - Urinary occult blood positive [Not Recovered/Not Resolved]
  - Musculoskeletal stiffness [Recovering/Resolving]
  - Depressed mood [Unknown]
  - Peripheral swelling [Unknown]
  - Malaise [Unknown]
  - Tremor [Unknown]
  - Balance disorder [Unknown]
  - Arthropod bite [Unknown]
  - Gaze palsy [Recovering/Resolving]
  - Limb discomfort [Unknown]
  - Psychiatric symptom [Unknown]
  - Sensory loss [Unknown]
  - Headache [Unknown]
  - Fatigue [Unknown]
